FAERS Safety Report 15376847 (Version 2)
Quarter: 2018Q4

REPORT INFORMATION
  Report Type: Spontaneous
  Country: JP (occurrence: JP)
  Receive Date: 20180913
  Receipt Date: 20181005
  Transmission Date: 20190204
  Serious: Yes (Other)
  Sender: FDA-Public Use
  Company Number: JP-ROCHE-2181609

PATIENT
  Sex: Female

DRUGS (1)
  1. BONVIVA [Suspect]
     Active Substance: IBANDRONATE SODIUM
     Indication: OSTEOPOROSIS
     Route: 042

REACTIONS (8)
  - Platelet count decreased [Recovered/Resolved]
  - Anaemia [Unknown]
  - White blood cell count decreased [Unknown]
  - Infection [Unknown]
  - Physical deconditioning [Unknown]
  - Immune thrombocytopenic purpura [Recovered/Resolved]
  - C-reactive protein increased [Unknown]
  - Insomnia [Unknown]

NARRATIVE: CASE EVENT DATE: 201705
